FAERS Safety Report 7085799 (Version 2)
Quarter: 2013Q2

REPORT INFORMATION
  Report Type: Spontaneous
  Country: GB (occurrence: None)
  Receive Date: 20090811
  Receipt Date: 20130404
  Transmission Date: 20140414
  Serious: Yes (Hospitalization, Other)
  Sender: FDA-Public Use
  Company Number: THQ2009A03357

PATIENT
  Age: 72 Year
  Sex: Female

DRUGS (9)
  1. LANSOPRAZOLE [Suspect]
     Indication: PROPHYLAXIS
  2. FLUOXETINE HCL [Suspect]
  3. TPN (PYRIDOXINE HYDROCHLORIDE, TYROSINE, NICOTINAMIDE) [Suspect]
     Indication: SHORT-BOWEL SYNDROME
  4. WARFARIN SODIUM [Suspect]
     Indication: PROPHYLAXIS
     Dates: end: 200309
  5. LOPERAMIDE [Concomitant]
  6. TEMAZEPAM [Concomitant]
  7. CODEINE (CODEINE PHOSPHATE) [Concomitant]
  8. LEVOTHYROXINE SODIUM [Concomitant]
  9. LOPERAMIDE [Suspect]

REACTIONS (10)
  - Hepatotoxicity [None]
  - Hypothyroidism [None]
  - Condition aggravated [None]
  - Feeding disorder [None]
  - Mesenteric artery thrombosis [None]
  - General physical health deterioration [None]
  - Hyporeflexia [None]
  - Intestinal ischaemia [None]
  - Device related sepsis [None]
  - Hepatitis cholestatic [None]
